FAERS Safety Report 24528335 (Version 1)
Quarter: 2024Q4

REPORT INFORMATION
  Report Type: Spontaneous
  Country: US (occurrence: None)
  Receive Date: 20241018
  Receipt Date: 20241018
  Transmission Date: 20250114
  Serious: Yes (Death, Hospitalization)
  Sender: Public
  Company Number: None

PATIENT
  Age: 71 Year
  Sex: Male
  Weight: 80 kg

DRUGS (2)
  1. RIVAROXABAN [Suspect]
     Active Substance: RIVAROXABAN
     Indication: Peripheral arterial occlusive disease
     Dosage: FREQUENCY : DAILY;?
     Route: 048
  2. APIXABAN [Suspect]
     Active Substance: APIXABAN

REACTIONS (3)
  - Haemorrhage [None]
  - Coagulopathy [None]
  - Hypersensitivity [None]

NARRATIVE: CASE EVENT DATE: 20231011
